FAERS Safety Report 8385778-7 (Version None)
Quarter: 2012Q2

REPORT INFORMATION
  Report Type: 
  Country: None (occurrence: None)
  Receive Date: 20120523
  Receipt Date: 20120517
  Transmission Date: 20120825
  Serious: Yes (Hospitalization, Other)
  Sender: FDA-Public Use
  Company Number: 2011SP048918

PATIENT
  Sex: Female

DRUGS (12)
  1. MICARDIS [Concomitant]
  2. AMLODIPINE BESYLATE [Concomitant]
  3. AMLODIPINE BESYLATE [Concomitant]
  4. INTRON A [Suspect]
     Indication: MALIGNANT MELANOMA
     Dosage: 40 MIU;IV 30 MIU;IV 22.6 MIU;TIW;IV 22.4 MIU;TIW 22.5 MIUT;TIW
     Route: 042
     Dates: start: 20111006, end: 20111201
  5. INTRON A [Suspect]
     Indication: MALIGNANT MELANOMA
     Dosage: 40 MIU;IV 30 MIU;IV 22.6 MIU;TIW;IV 22.4 MIU;TIW 22.5 MIUT;TIW
     Route: 042
     Dates: start: 20120116
  6. INTRON A [Suspect]
     Indication: MALIGNANT MELANOMA
     Dosage: 40 MIU;IV 30 MIU;IV 22.6 MIU;TIW;IV 22.4 MIU;TIW 22.5 MIUT;TIW
     Route: 042
     Dates: start: 20110829
  7. INTRON A [Suspect]
     Indication: MALIGNANT MELANOMA
     Dosage: 40 MIU;IV 30 MIU;IV 22.6 MIU;TIW;IV 22.4 MIU;TIW 22.5 MIUT;TIW
     Route: 042
     Dates: start: 20111003
  8. INTRON A [Suspect]
     Indication: MALIGNANT MELANOMA
     Dosage: 40 MIU;IV 30 MIU;IV 22.6 MIU;TIW;IV 22.4 MIU;TIW 22.5 MIUT;TIW
     Route: 042
     Dates: start: 20111016
  9. INTRON A [Suspect]
     Indication: MALIGNANT MELANOMA
     Dosage: 40 MIU;IV 30 MIU;IV 22.6 MIU;TIW;IV 22.4 MIU;TIW 22.5 MIUT;TIW
     Route: 042
     Dates: start: 20120507
  10. ATIACID [Concomitant]
  11. ZOFRAN [Concomitant]
  12. ACETAMINOPHEN [Concomitant]

REACTIONS (20)
  - HEADACHE [None]
  - FEELING OF BODY TEMPERATURE CHANGE [None]
  - CARDIAC FLUTTER [None]
  - NAUSEA [None]
  - LETHARGY [None]
  - LOWER RESPIRATORY TRACT INFECTION [None]
  - FOOD POISONING [None]
  - PYREXIA [None]
  - SALMONELLA SEPSIS [None]
  - PAIN [None]
  - BLOOD CREATININE INCREASED [None]
  - LIVER FUNCTION TEST ABNORMAL [None]
  - RASH [None]
  - CHILLS [None]
  - FATIGUE [None]
  - DYSPNOEA [None]
  - RENAL FUNCTION TEST ABNORMAL [None]
  - BLOOD PRESSURE ABNORMAL [None]
  - BLOOD COUNT ABNORMAL [None]
  - BLOOD TEST ABNORMAL [None]
